FAERS Safety Report 6719349-2 (Version None)
Quarter: 2010Q2

REPORT INFORMATION
  Report Type: 
  Country: None (occurrence: None)
  Receive Date: 20100507
  Receipt Date: 20100423
  Transmission Date: 20101027
  Serious: Yes (Hospitalization)
  Sender: FDA-Public Use
  Company Number: 8048163

PATIENT
  Sex: Male
  Weight: 80 kg

DRUGS (7)
  1. CERTOLIZUMAB PEGOL [Suspect]
     Indication: CROHN'S DISEASE
     Dosage: SUBCUTANEOUS
     Route: 058
     Dates: start: 20080611
  2. XANAX [Concomitant]
  3. CARAFATE [Concomitant]
  4. ATACAND [Concomitant]
  5. ZOLOFT [Concomitant]
  6. FOLIC ACID [Concomitant]
  7. REMERON [Concomitant]

REACTIONS (7)
  - COLITIS [None]
  - DEHYDRATION [None]
  - ELECTROLYTE IMBALANCE [None]
  - HYPOTENSION [None]
  - MYALGIA [None]
  - SEPSIS [None]
  - SYNCOPE [None]
